FAERS Safety Report 13014163 (Version 3)
Quarter: 2017Q4

REPORT INFORMATION
  Report Type: Spontaneous
  Country: US (occurrence: US)
  Receive Date: 20161209
  Receipt Date: 20171220
  Transmission Date: 20180320
  Serious: No
  Sender: FDA-Public Use
  Company Number: US-TEVA-719466ACC

PATIENT
  Age: 58 Year
  Sex: Female

DRUGS (18)
  1. GLUCOPHAGE [Concomitant]
     Active Substance: METFORMIN HYDROCHLORIDE
  2. ONDANSETRON [Concomitant]
     Active Substance: ONDANSETRON
  3. LOTREL [Concomitant]
     Active Substance: AMLODIPINE BESYLATE\BENAZEPRIL HYDROCHLORIDE
  4. PAROXETINE. [Concomitant]
     Active Substance: PAROXETINE
  5. AMLODIPINE [Concomitant]
     Active Substance: AMLODIPINE BESYLATE
  6. IMODIUM A-D [Concomitant]
     Active Substance: LOPERAMIDE HYDROCHLORIDE
  7. LIPITOR [Concomitant]
     Active Substance: ATORVASTATIN CALCIUM
  8. DICYCLOMINE [Concomitant]
     Active Substance: DICYCLOMINE HYDROCHLORIDE
  9. BENADRYL [Concomitant]
     Active Substance: DIPHENHYDRAMINE HYDROCHLORIDE
  10. BUSPIRONE [Concomitant]
     Active Substance: BUSPIRONE HYDROCHLORIDE
  11. PANTOPRAZOLE SODIUM. [Concomitant]
     Active Substance: PANTOPRAZOLE SODIUM
  12. FAMOTIDINE. [Concomitant]
     Active Substance: FAMOTIDINE
  13. ATORVASTATIN [Concomitant]
     Active Substance: ATORVASTATIN
  14. LOSARTAN POTASSIUM. [Concomitant]
     Active Substance: LOSARTAN POTASSIUM
  15. SUCRALFATE. [Concomitant]
     Active Substance: SUCRALFATE
  16. COPAXONE [Suspect]
     Active Substance: GLATIRAMER ACETATE
     Indication: MULTIPLE SCLEROSIS
     Dosage: 20 MILLIGRAM DAILY; PRE FILLED SYRINGE
     Route: 058
     Dates: start: 20100716
  17. QUESTRAN [Concomitant]
     Active Substance: CHOLESTYRAMINE
  18. AMANTADINE. [Concomitant]
     Active Substance: AMANTADINE HYDROCHLORIDE

REACTIONS (5)
  - Dyspnoea [Unknown]
  - Memory impairment [Not Recovered/Not Resolved]
  - Product quality issue [Unknown]
  - Asthenia [Not Recovered/Not Resolved]
  - Flushing [Not Recovered/Not Resolved]

NARRATIVE: CASE EVENT DATE: 2016
